FAERS Safety Report 4336041-2 (Version None)
Quarter: 2004Q2

REPORT INFORMATION
  Report Type: 
  Country: None (occurrence: None)
  Receive Date: 20040406
  Receipt Date: 20040323
  Transmission Date: 20050107
  Serious: Yes (Hospitalization)
  Sender: FDA-Public Use
  Company Number: 2004203149JP

PATIENT
  Age: 73 Year
  Sex: Female
  Weight: 35 kg

DRUGS (5)
  1. XALATAN [Suspect]
     Indication: GLAUCOMA
     Dosage: 1 GTT, QD, OPHTHALMIC;
     Route: 047
     Dates: start: 20031009, end: 20031122
  2. XALATAN [Suspect]
     Indication: GLAUCOMA
     Dosage: 1 GTT, QD, OPHTHALMIC;
     Route: 047
     Dates: start: 20030728, end: 20040204
  3. XALATAN [Suspect]
     Indication: GLAUCOMA
     Dosage: 1 GTT, QD, OPHTHALMIC;
     Route: 047
     Dates: start: 20040109, end: 20040206
  4. TIMOPTIC [Concomitant]
  5. AZOPT [Concomitant]

REACTIONS (2)
  - CORNEAL EPITHELIUM DISORDER [None]
  - PAIN [None]
